FAERS Safety Report 5168777-8 (Version None)
Quarter: 2006Q4

REPORT INFORMATION
  Report Type: 
  Country: None (occurrence: None)
  Receive Date: 20061206
  Receipt Date: 20061206
  Transmission Date: 20070319
  Serious: Yes (Other)
  Sender: FDA-Public Use
  Company Number: None

PATIENT
  Age: 45 Year
  Sex: Female
  Weight: 108.5 kg

DRUGS (1)
  1. PERCOCET [Suspect]

REACTIONS (2)
  - NAUSEA [None]
  - VOMITING [None]
